FAERS Safety Report 5151567-X (Version None)
Quarter: 2006Q4

REPORT INFORMATION
  Report Type: 
  Country: None (occurrence: None)
  Receive Date: 20061115
  Receipt Date: 20051212
  Transmission Date: 20070319
  Serious: Yes (Hospitalization)
  Sender: FDA-Public Use
  Company Number: JP-ROCHE-428375

PATIENT
  Age: 64 Year
  Sex: Male

DRUGS (7)
  1. PEGASYS [Suspect]
     Route: 058
  2. PEGASYS [Suspect]
     Route: 058
     Dates: start: 20051101, end: 20051111
  3. INTRON A [Suspect]
     Route: 058
     Dates: start: 20051031, end: 20051031
  4. NEO-MINOPHAGEN C [Concomitant]
     Dosage: ROUTE OF ADMINISTRATION REPORTED AS INJECTABLE (NOT OTHERWISE SPECIFIED).
     Route: 050
  5. CALONAL [Concomitant]
     Dosage: DOSE FORM = ORAL FORMULATION (NOT OTHERWISE SPECIFIED)
  6. LOXONIN [Concomitant]
     Dosage: DOSE FORM = ORAL FORMULATION (NOT OTHERWISE SPECIFIED)
     Route: 048
  7. HARNAL [Concomitant]
     Route: 048

REACTIONS (5)
  - BONE MARROW FAILURE [None]
  - DISSEMINATED INTRAVASCULAR COAGULATION [None]
  - INTERSTITIAL LUNG DISEASE [None]
  - PANCYTOPENIA [None]
  - PYREXIA [None]
